FAERS Safety Report 24115488 (Version 1)
Quarter: 2024Q3

REPORT INFORMATION
  Report Type: Spontaneous
  Country: US (occurrence: US)
  Receive Date: 20240721
  Receipt Date: 20240721
  Transmission Date: 20241016
  Serious: No
  Sender: NOVO NORDISK
  Company Number: US-NOVOPROD-1222137

PATIENT
  Sex: Female

DRUGS (1)
  1. WEGOVY [Suspect]
     Active Substance: SEMAGLUTIDE
     Indication: Obesity
     Dosage: 0.25 MG, QW
     Route: 058
     Dates: start: 20240405, end: 20240419

REACTIONS (7)
  - Pruritus [Recovered/Resolved]
  - Neck pain [Recovered/Resolved]
  - Ear swelling [Recovered/Resolved]
  - Contusion [Unknown]
  - Ear pain [Recovered/Resolved]
  - Pain of skin [Recovered/Resolved]
  - Nausea [Unknown]

NARRATIVE: CASE EVENT DATE: 20240412
